FAERS Safety Report 8136402-X (Version None)
Quarter: 2012Q1

REPORT INFORMATION
  Report Type: 
  Country: None (occurrence: None)
  Receive Date: 20120214
  Receipt Date: 20120203
  Transmission Date: 20120608
  Serious: Yes (Hospitalization, Other)
  Sender: FDA-Public Use
  Company Number: US-ELI_LILLY_AND_COMPANY-US201106002071

PATIENT
  Sex: Female
  Weight: 52.1 kg

DRUGS (31)
  1. NORCO [Concomitant]
     Indication: PAIN
     Dosage: 7.5 MG, QD
  2. GLUCOSAMINE CHONDROITIN [Concomitant]
     Dosage: 1 DF, BID
  3. VITAMIN B-12 [Concomitant]
     Dosage: 1 DF, 2/M
  4. FERROUS SULFATE TAB [Concomitant]
     Dosage: 325 MG, QD
  5. ZINC SULFATE [Concomitant]
  6. FORTEO [Suspect]
     Indication: OSTEOPOROSIS
     Dosage: 20 UG, QD
     Route: 030
  7. FORTEO [Suspect]
     Dosage: 20 UG, QD
     Route: 030
  8. SENOKOT [Concomitant]
     Dosage: 1 DF, BID
  9. LOTENSIN [Concomitant]
     Dosage: 10 MG, EACH MORNING
  10. LIDODERM [Concomitant]
     Dosage: 5 %, BID
  11. FISH OIL [Concomitant]
     Dosage: 1200 MG, EACH MORNING
  12. GLUCOSAMINE CHONDROITIN [Concomitant]
     Dosage: 1 UNK, BID
  13. ANTIBIOTICS [Concomitant]
  14. PRILOSEC [Concomitant]
     Dosage: 20 MG, EACH MORNING
  15. IRON [Concomitant]
     Dosage: 2 DF, QD
  16. NORCO [Concomitant]
     Dosage: 325 MG, QD
  17. ASPIRIN [Concomitant]
     Dosage: 81 MG, QD
  18. IRON [Concomitant]
     Dosage: 130 MG, QD
  19. NORVASC [Concomitant]
     Dosage: 5 MG, QD
  20. CALCIUM [Concomitant]
     Dosage: 1200 MG, BID
  21. TEARS NATURALE [Concomitant]
  22. MAGNESIUM OXIDE [Concomitant]
     Dosage: 400 MG, EACH MORNING
  23. NORCO [Concomitant]
     Dosage: 665 MG, EVERY 4 HRS
  24. SYNTHROID [Concomitant]
     Dosage: 50 MG, EACH MORNING
  25. SYNTHROID [Concomitant]
     Dosage: 50 UG, EACH MORNING
  26. CENTURY [Concomitant]
     Dosage: 1 DF, QD
  27. ASCORBIC ACID [Concomitant]
     Dosage: 1000 MG, EACH MORNING
  28. KEFLEX [Concomitant]
     Dosage: 500 MG, UNKNOWN
  29. VITAMIN D [Concomitant]
  30. REMERON [Concomitant]
     Dosage: 15 MG, QD
  31. VITAMIN E [Concomitant]
     Dosage: 400 IU, EACH MORNING

REACTIONS (20)
  - MITRAL VALVE INCOMPETENCE [None]
  - VENTRICULAR HYPERTROPHY [None]
  - HAEMATOMA [None]
  - URINARY TRACT INFECTION [None]
  - OBSTRUCTION [None]
  - FEELING ABNORMAL [None]
  - ATRIOVENTRICULAR BLOCK [None]
  - PALLOR [None]
  - INCISION SITE HAEMORRHAGE [None]
  - LOSS OF CONSCIOUSNESS [None]
  - SICK SINUS SYNDROME [None]
  - EXTRASYSTOLES [None]
  - BREAST CANCER STAGE I [None]
  - ABASIA [None]
  - NAUSEA [None]
  - RECTAL HAEMORRHAGE [None]
  - ARTHRALGIA [None]
  - BREAST MASS [None]
  - PULSE PRESSURE DECREASED [None]
  - CARDIOMYOPATHY [None]
